FAERS Safety Report 9798809 (Version 2)
Quarter: 2014Q1

REPORT INFORMATION
  Report Type: Spontaneous
  Country: US (occurrence: US)
  Receive Date: 20140106
  Receipt Date: 20140106
  Transmission Date: 20141002
  Serious: No
  Sender: FDA-Public Use
  Company Number: US-GILEAD-2010-0030106

PATIENT
  Age: 74 Year
  Sex: Male
  Weight: 108.86 kg

DRUGS (15)
  1. LETAIRIS [Suspect]
     Indication: PULMONARY ARTERIAL HYPERTENSION
     Route: 048
     Dates: start: 20080714
  2. REVATIO [Concomitant]
  3. TASPIRIN [Concomitant]
  4. METOPROLOL [Concomitant]
  5. HYZAAR [Concomitant]
  6. WELCHOL [Concomitant]
  7. ZOCOR [Concomitant]
  8. GLIPIZIDE [Concomitant]
  9. METFORMIN [Concomitant]
  10. BYETTA [Concomitant]
  11. GABAPENTIN [Concomitant]
  12. VALTREX [Concomitant]
  13. VALIUM [Concomitant]
  14. MULTIVITAMIN [Concomitant]
  15. FISH OIL [Concomitant]

REACTIONS (1)
  - Liver function test abnormal [Unknown]
